FAERS Safety Report 7629617-8 (Version None)
Quarter: 2011Q3

REPORT INFORMATION
  Report Type: 
  Country: None (occurrence: None)
  Receive Date: 20110722
  Receipt Date: 20110718
  Transmission Date: 20111222
  Serious: Yes (Hospitalization)
  Sender: FDA-Public Use
  Company Number: US-ROCHE-776616

PATIENT
  Sex: Female
  Weight: 56.2 kg

DRUGS (4)
  1. PEGINTERFERON ALFA-2A [Suspect]
     Indication: HEPATITIS C
     Dosage: FORM: PRE-FILLED SYRINGE
     Route: 065
     Dates: start: 20101117
  2. RIBASPHERE [Suspect]
     Indication: HEPATITIS C
     Dosage: DIVIDED DOSES
     Route: 065
     Dates: start: 20101117
  3. CLONAZEPAM [Suspect]
     Route: 065
  4. TRAMADOL HCL [Suspect]
     Route: 065

REACTIONS (5)
  - WEIGHT DECREASED [None]
  - FATIGUE [None]
  - PACKED RED BLOOD CELL TRANSFUSION [None]
  - STOMATITIS [None]
  - BRONCHITIS [None]
